FAERS Safety Report 18115337 (Version 2)
Quarter: 2020Q3

REPORT INFORMATION
  Report Type: Spontaneous
  Country: SN (occurrence: SN)
  Receive Date: 20200805
  Receipt Date: 20200831
  Transmission Date: 20201103
  Serious: Yes (Other)
  Sender: FDA-Public Use
  Company Number: SN-BRISTOL-MYERS SQUIBB COMPANY-BMS-2020-062318

PATIENT
  Sex: Male

DRUGS (1)
  1. SPRYCEL [Suspect]
     Active Substance: DASATINIB
     Indication: CHRONIC MYELOID LEUKAEMIA
     Dosage: 100MG (2 X 50MG TABLETS)
     Route: 065

REACTIONS (2)
  - Cardiac disorder [Unknown]
  - COVID-19 [Unknown]
